FAERS Safety Report 6293577-5 (Version None)
Quarter: 2009Q3

REPORT INFORMATION
  Report Type: 
  Country: None (occurrence: None)
  Receive Date: 20090729
  Receipt Date: 20090331
  Transmission Date: 20100115
  Serious: Yes (Hospitalization)
  Sender: FDA-Public Use
  Company Number: JPI-P-006846

PATIENT
  Age: 69 Year
  Sex: Female

DRUGS (3)
  1. FLUVOXAMINE MALEATE [Suspect]
     Indication: INSOMNIA
     Dosage: (75 MG, 1 D), ORAL
     Route: 048
     Dates: start: 20090316, end: 20090324
  2. FLUNITRAZEPAM [Suspect]
     Indication: DRUG USE FOR UNKNOWN INDICATION
     Dosage: (1 MG, 1 D), ORAL
     Route: 048
     Dates: start: 20090309, end: 20090324
  3. DOMPERIDONE [Concomitant]

REACTIONS (7)
  - BLOOD URINE PRESENT [None]
  - HALLUCINATION [None]
  - INSOMNIA [None]
  - MALAISE [None]
  - RHABDOMYOLYSIS [None]
  - SEROTONIN SYNDROME [None]
  - TREMOR [None]
